FAERS Safety Report 19035843 (Version 1)
Quarter: 2021Q1

REPORT INFORMATION
  Report Type: Report from Study
  Country: GB (occurrence: GB)
  Receive Date: 20210321
  Receipt Date: 20210321
  Transmission Date: 20210420
  Serious: Yes (Other)
  Sender: FDA-Public Use
  Company Number: GB-TEVA-2021-GB-1890243

PATIENT
  Sex: Female

DRUGS (1)
  1. LEVETIRACETAM. [Suspect]
     Active Substance: LEVETIRACETAM
     Indication: EPILEPSY
     Route: 065

REACTIONS (3)
  - Maternal exposure during pregnancy [Unknown]
  - Hyperemesis gravidarum [Unknown]
  - Seizure [Unknown]
